FAERS Safety Report 15575441 (Version 1)
Quarter: 2018Q4

REPORT INFORMATION
  Report Type: Spontaneous
  Country: CN (occurrence: CN)
  Receive Date: 20181101
  Receipt Date: 20181101
  Transmission Date: 20190205
  Serious: Yes (Life-Threatening)
  Sender: FDA-Public Use
  Company Number: CN-EISAI MEDICAL RESEARCH-EC-2018-047106

PATIENT
  Age: 92 Year
  Sex: Female

DRUGS (2)
  1. BISOPROLOL FUMARATE. [Suspect]
     Active Substance: BISOPROLOL FUMARATE
     Indication: SUBARACHNOID HAEMORRHAGE
     Route: 048
     Dates: start: 20180821
  2. DONEPEZIL. [Suspect]
     Active Substance: DONEPEZIL
     Indication: SUBARACHNOID HAEMORRHAGE
     Route: 048
     Dates: start: 20180814

REACTIONS (1)
  - Sinus arrest [Recovering/Resolving]

NARRATIVE: CASE EVENT DATE: 20180913
